FAERS Safety Report 7538099-6 (Version None)
Quarter: 2011Q2

REPORT INFORMATION
  Report Type: 
  Country: None (occurrence: None)
  Receive Date: 20110609
  Receipt Date: 20010412
  Transmission Date: 20111010
  Serious: Yes (Death)
  Sender: FDA-Public Use
  Company Number: PHFR2001GB01314

PATIENT
  Sex: Male

DRUGS (5)
  1. DILTIAZEM [Concomitant]
     Indication: HYPERTENSION
     Route: 065
  2. CAPTOPRIL [Concomitant]
     Indication: HYPERTENSION
     Route: 065
  3. NEORAL [Suspect]
     Indication: HEART TRANSPLANT
     Dosage: 275 MG, DAILY
     Route: 048
     Dates: start: 19960415
  4. NEORAL [Suspect]
     Dosage: 200 MG, DAILY
     Route: 048
  5. AZATHIOPRINE [Concomitant]
     Dosage: 100 MG, DAILY
     Route: 048

REACTIONS (1)
  - CEREBRAL HAEMORRHAGE [None]
